FAERS Safety Report 6848379-5 (Version None)
Quarter: 2010Q3

REPORT INFORMATION
  Report Type: 
  Country: None (occurrence: None)
  Receive Date: 20100716
  Receipt Date: 20100630
  Transmission Date: 20110219
  Serious: Yes (Other)
  Sender: FDA-Public Use
  Company Number: JP-ROCHE-715121

PATIENT
  Age: 51 Year
  Sex: Male

DRUGS (8)
  1. VALGANCICLOVIR [Suspect]
     Indication: CYTOMEGALOVIRUS INFECTION
     Dosage: FORM AND FREQUENCY NOT PROVIDED.
     Route: 048
     Dates: start: 20100311, end: 20100322
  2. NEORAL [Concomitant]
     Route: 048
     Dates: start: 20100127
  3. PRIMPERAN TAB [Concomitant]
     Dosage: STARTED BEFORE START OF VALGANCICLOVIR.
     Route: 048
     Dates: end: 20100527
  4. MUCOSTA [Concomitant]
     Dosage: STARTED BEFORE START OF VALGANCICLOVIR.
     Route: 048
  5. URSO 250 [Concomitant]
     Dosage: STARTED BEFORE START OF VALGANCICLOVIR.
     Route: 048
  6. DIFLUCAN [Concomitant]
     Dosage: STARTED BEFORE START OF VALGANCICLOVIR.
     Route: 048
     Dates: end: 20100427
  7. COTRIM [Concomitant]
     Dosage: STARTED BEFORE START OF VALGANCICLOVIR. DOSE: 2 TABLET
     Route: 048
  8. RHYTHMY [Concomitant]
     Dosage: STARTED BEFORE START OF VALGANCICLOVIR.
     Route: 048
     Dates: end: 20100330

REACTIONS (3)
  - BLOOD ALKALINE PHOSPHATASE INCREASED [None]
  - INTERSTITIAL LUNG DISEASE [None]
  - PLATELET COUNT DECREASED [None]
